FAERS Safety Report 5040215-5 (Version None)
Quarter: 2006Q2

REPORT INFORMATION
  Report Type: 
  Country: None (occurrence: None)
  Receive Date: 20060630
  Receipt Date: 20060522
  Transmission Date: 20061013
  Serious: Yes (Hospitalization)
  Sender: FDA-Public Use
  Company Number: BR-NOVOPROD-253559

PATIENT
  Age: 64 Year
  Sex: Male
  Weight: 67 kg

DRUGS (8)
  1. LEVEMIR [Suspect]
     Indication: DIABETES MELLITUS
     Dosage: 44 IU, QD
  2. NOVORAPID FLEXPEN [Concomitant]
     Indication: DIABETES MELLITUS
     Dosage: 14 IU, QD
  3. ATENOLOL [Concomitant]
     Dosage: 25 MG, QD
  4. B1 VITAMIN [Concomitant]
  5. PYRIDOXIN [Concomitant]
  6. CYANOCOBALAMIN [Concomitant]
  7. CALCIUM COMPLEX [Concomitant]
     Dosage: 1 TAB, QD
  8. OMEPRAZOLE [Concomitant]
     Dosage: 20 MG, QD

REACTIONS (1)
  - TRANSMYOCARDIAL REVASCULARISATION [None]
